FAERS Safety Report 25097096 (Version 1)
Quarter: 2025Q1

REPORT INFORMATION
  Report Type: Report from Study
  Country: TR (occurrence: TR)
  Receive Date: 20250319
  Receipt Date: 20250319
  Transmission Date: 20250408
  Serious: Yes (Death)
  Sender: ABBVIE
  Company Number: TR-ABBVIE-5574324

PATIENT
  Age: 70 Year
  Sex: Male
  Weight: 70 kg

DRUGS (4)
  1. CARBIDOPA\LEVODOPA [Suspect]
     Active Substance: CARBIDOPA\LEVODOPA
     Indication: Parkinson^s disease
     Route: 050
     Dates: start: 20221018, end: 20230104
  2. CARBIDOPA\LEVODOPA [Suspect]
     Active Substance: CARBIDOPA\LEVODOPA
     Route: 050
     Dates: start: 20240104
  3. Cedrina xr [Concomitant]
     Indication: Parkinson^s disease
     Dosage: FORM STRENGTH 50 MILLIGRAM
  4. Dopadex sr [Concomitant]
     Indication: Parkinson^s disease
     Dosage: 50/200 MG
     Route: 048

REACTIONS (2)
  - Death [Fatal]
  - Dyskinesia [Not Recovered/Not Resolved]

NARRATIVE: CASE EVENT DATE: 20250314
